FAERS Safety Report 8237578-6 (Version None)
Quarter: 2012Q1

REPORT INFORMATION
  Report Type: 
  Country: None (occurrence: None)
  Receive Date: 20120323
  Receipt Date: 20120301
  Transmission Date: 20120608
  Serious: Yes (Other)
  Sender: FDA-Public Use
  Company Number: US-2012-10278

PATIENT
  Age: 59 Year
  Sex: Male

DRUGS (5)
  1. FLUDARABINE PHOSPHATE [Concomitant]
  2. CYCLOSPORINE [Concomitant]
  3. BUSULFAN [Suspect]
     Indication: STEM CELL TRANSPLANT
     Dosage: UNK, UNKNOWN, UNKNOWN
  4. CAMPATH [Concomitant]
  5. METHOTREXATE [Concomitant]

REACTIONS (4)
  - ASPARTATE AMINOTRANSFERASE INCREASED [None]
  - HEPATITIS E ANTIBODY POSITIVE [None]
  - ALANINE AMINOTRANSFERASE INCREASED [None]
  - LIVER INJURY [None]
